FAERS Safety Report 10245066 (Version 1)
Quarter: 2014Q2

REPORT INFORMATION
  Report Type: Spontaneous
  Country: US (occurrence: None)
  Receive Date: 20140616
  Receipt Date: 20140616
  Transmission Date: 20141212
  Serious: No
  Sender: FDA-Public Use
  Company Number: None

PATIENT
  Age: 76 Year
  Sex: Male
  Weight: 92.99 kg

DRUGS (3)
  1. BENICAR [Suspect]
     Indication: BLOOD PRESSURE
     Route: 048
     Dates: start: 20140428
  2. METFORMIN [Concomitant]
  3. ASPIRIN [Concomitant]

REACTIONS (5)
  - Hyperhidrosis [None]
  - Vomiting [None]
  - Diarrhoea [None]
  - Hyperchlorhydria [None]
  - Dizziness [None]
